FAERS Safety Report 4940538-1 (Version None)
Quarter: 2006Q1

REPORT INFORMATION
  Report Type: 
  Country: None (occurrence: None)
  Receive Date: 20060112
  Receipt Date: 20050929
  Transmission Date: 20060701
  Serious: Yes (Other)
  Sender: FDA-Public Use
  Company Number: 419734

PATIENT
  Age: 40 Year
  Sex: Male
  Weight: 104.3 kg

DRUGS (5)
  1. FUZEON [Suspect]
     Indication: HIV INFECTION
     Dosage: 90 MG 2 PER DAY SUBCUTANEOUS
     Route: 058
     Dates: start: 20050715, end: 20050915
  2. KALETRA (LOPINAVIR/RITONAVIR) 166.6MG [Suspect]
     Indication: HIV INFECTION
     Dosage: 499.8 MG 2 PER DAY ORAL
     Route: 048
  3. VIREAD [Concomitant]
  4. EPZICOM (ABACAVIR SUCCINATE/LAMIVUDINE) [Concomitant]
  5. ALLEGRA D 24 HOUR [Concomitant]

REACTIONS (7)
  - BLOOD TRIGLYCERIDES INCREASED [None]
  - DIZZINESS [None]
  - FATIGUE [None]
  - HYPERSENSITIVITY [None]
  - INJECTION SITE REACTION [None]
  - PAIN IN EXTREMITY [None]
  - VIRAL LOAD INCREASED [None]
